FAERS Safety Report 21500400 (Version 10)
Quarter: 2023Q2

REPORT INFORMATION
  Report Type: Spontaneous
  Country: CA (occurrence: CA)
  Receive Date: 20221025
  Receipt Date: 20230619
  Transmission Date: 20230721
  Serious: Yes (Other)
  Sender: FDA-Public Use
  Company Number: CA-CELLTRION INC.-2022CA017326

PATIENT

DRUGS (12)
  1. INFLECTRA [Suspect]
     Active Substance: INFLIXIMAB-DYYB
     Indication: Colitis ulcerative
     Dosage: 400 MG, INDUCTION AT 0,2,6 WEEKS THEN EVERY 8 WEEKS
     Route: 042
     Dates: start: 20220810, end: 20221012
  2. INFLECTRA [Suspect]
     Active Substance: INFLIXIMAB-DYYB
     Dosage: 400 MG, INDUCTION AT 0,2,6 WEEKS THEN EVERY 8 WEEKS
     Route: 042
     Dates: start: 20220824
  3. INFLECTRA [Suspect]
     Active Substance: INFLIXIMAB-DYYB
     Dosage: 400 MG, INDUCTION AT 0,2,6 WEEKS THEN EVERY 8 WEEKS
     Route: 042
     Dates: start: 20221012
  4. INFLECTRA [Suspect]
     Active Substance: INFLIXIMAB-DYYB
     Dosage: 600 MG, EVERY 8 WEEKS
     Route: 042
     Dates: start: 20221208
  5. INFLECTRA [Suspect]
     Active Substance: INFLIXIMAB-DYYB
     Dosage: 600 MG, EVERY 8 WEEKS
     Route: 042
     Dates: start: 20230218
  6. INFLECTRA [Suspect]
     Active Substance: INFLIXIMAB-DYYB
     Dosage: 600 MG EVERY 8 WEEKS
     Route: 042
     Dates: start: 20230408
  7. INFLECTRA [Suspect]
     Active Substance: INFLIXIMAB-DYYB
     Dosage: UNK
     Dates: start: 20230527
  8. INFLECTRA [Suspect]
     Active Substance: INFLIXIMAB-DYYB
     Dosage: 600 MG AT Q4 WEEKS (NOT YET STARTED)
     Route: 042
  9. DIPHENHYDRAMINE [Concomitant]
     Active Substance: DIPHENHYDRAMINE
     Indication: Premedication
     Dosage: 25-50 MG
  10. HUMIRA [Concomitant]
     Active Substance: ADALIMUMAB
     Dosage: UNK
  11. MESALAMINE [Concomitant]
     Active Substance: MESALAMINE
     Dosage: 1 DF, UNKNOWN DOSE
     Route: 065
  12. PREDNISONE [Concomitant]
     Active Substance: PREDNISONE
     Dosage: 4 MG

REACTIONS (10)
  - Hypersensitivity [Unknown]
  - Dust allergy [Unknown]
  - Off label use [Unknown]
  - Intentional product use issue [Unknown]
  - Off label use [Unknown]
  - Off label use [Unknown]
  - Sneezing [Not Recovered/Not Resolved]
  - Malaise [Recovering/Resolving]
  - Nasopharyngitis [Recovering/Resolving]
  - Condition aggravated [Recovered/Resolved]

NARRATIVE: CASE EVENT DATE: 20220101
